FAERS Safety Report 4386183-0 (Version None)
Quarter: 2004Q2

REPORT INFORMATION
  Report Type: 
  Country: None (occurrence: None)
  Receive Date: 20040628
  Receipt Date: 20040628
  Transmission Date: 20050107
  Serious: Yes (Hospitalization, Other)
  Sender: FDA-Public Use
  Company Number: None

PATIENT
  Age: 72 Year
  Sex: Male

DRUGS (9)
  1. ABILIFY [Suspect]
     Indication: PSYCHOTIC DISORDER
     Dosage: 10 MG PO DAILY
     Route: 048
     Dates: start: 20040504, end: 20040506
  2. MIRAPEX [Concomitant]
  3. METOPROPOLOL [Concomitant]
  4. SIMVASTATIN [Concomitant]
  5. METFORMIN [Concomitant]
  6. SINEMET 25/100CR [Concomitant]
  7. SYNTHROID [Concomitant]
  8. HYDROCHLOROTHIAZIDE [Concomitant]
  9. PROTONIX [Concomitant]

REACTIONS (3)
  - ACTIVITIES OF DAILY LIVING IMPAIRED [None]
  - GAIT DISTURBANCE [None]
  - MOBILITY DECREASED [None]
